FAERS Safety Report 6537126-2 (Version None)
Quarter: 2010Q1

REPORT INFORMATION
  Report Type: 
  Country: None (occurrence: None)
  Receive Date: 20100114
  Receipt Date: 20100106
  Transmission Date: 20100710
  Serious: Yes (Hospitalization)
  Sender: FDA-Public Use
  Company Number: CA-JNJFOC-20100102341

PATIENT
  Sex: Female
  Weight: 67.8 kg

DRUGS (17)
  1. REMICADE [Suspect]
     Route: 042
  2. REMICADE [Suspect]
     Indication: RHEUMATOID ARTHRITIS
     Route: 042
  3. CRESTOR [Concomitant]
     Indication: HYPERCHOLESTEROLAEMIA
     Route: 048
  4. LYRICA [Concomitant]
     Indication: FIBROMYALGIA
     Route: 048
  5. ELAVIL [Concomitant]
     Indication: FIBROMYALGIA
     Route: 048
  6. PREDNISONE [Concomitant]
     Indication: RHEUMATOID ARTHRITIS
     Route: 048
  7. METHOTREXATE [Concomitant]
     Indication: RHEUMATOID ARTHRITIS
     Route: 048
  8. LEUCOVORIN CALCIUM [Concomitant]
     Route: 048
  9. LOSEC [Concomitant]
     Indication: GASTROOESOPHAGEAL REFLUX DISEASE
     Route: 048
  10. SALAGEN [Concomitant]
     Indication: DRY MOUTH
     Route: 048
  11. NAPROSYN [Concomitant]
     Indication: RHEUMATOID ARTHRITIS
     Route: 048
  12. FLEXERIL [Concomitant]
     Indication: INSOMNIA
     Route: 048
  13. ACTONEL [Concomitant]
     Indication: OSTEOPOROSIS PROPHYLAXIS
     Route: 048
  14. TYLENOL ARTHRITIS PAIN EXTENDED RELEIF [Concomitant]
     Indication: RHEUMATOID ARTHRITIS
  15. MOGADON [Concomitant]
     Indication: INSOMNIA
     Route: 048
  16. METAMUCIL [Concomitant]
     Indication: CONSTIPATION
     Route: 048
  17. CALCIUM AND VITAMIN D [Concomitant]
     Indication: NUTRITIONAL SUPPORT
     Dosage: 2 CAPSULES ONCE A DAY
     Route: 048

REACTIONS (4)
  - ECCHYMOSIS [None]
  - FALL [None]
  - FRACTURE [None]
  - HAEMATOMA [None]
